FAERS Safety Report 7913797-0 (Version None)
Quarter: 2011Q4

REPORT INFORMATION
  Report Type: 
  Country: None (occurrence: None)
  Receive Date: 20111115
  Receipt Date: 20111110
  Transmission Date: 20120403
  Serious: Yes (Other)
  Sender: FDA-Public Use
  Company Number: CA-JNJFOC-20111004199

PATIENT
  Age: 55 Year
  Sex: Male
  Weight: 73.48 kg

DRUGS (4)
  1. NICORETTE [Suspect]
     Route: 062
  2. NICORETTE [Suspect]
     Indication: SMOKING CESSATION THERAPY
     Route: 062
     Dates: start: 20101006
  3. ALL OTHER THERAPEUTIC PRODUCTS [Concomitant]
     Indication: PRODUCT USED FOR UNKNOWN INDICATION
     Route: 065
  4. NICORETTE [Suspect]
     Indication: SMOKING CESSATION THERAPY
     Dosage: ONE CARTRIDGE EVERY TWO HOURS, EIGHT CARTRIDGES A DAY
     Route: 055
     Dates: start: 20101006

REACTIONS (4)
  - PRODUCT TASTE ABNORMAL [None]
  - DEPENDENCE [None]
  - OVERDOSE [None]
  - INCORRECT DRUG ADMINISTRATION DURATION [None]
